FAERS Safety Report 10654910 (Version 3)
Quarter: 2015Q1

REPORT INFORMATION
  Report Type: Spontaneous
  Country: US (occurrence: US)
  Receive Date: 20141216
  Receipt Date: 20150102
  Transmission Date: 20150720
  Serious: Yes (Hospitalization)
  Sender: FDA-Public Use
  Company Number: US-PFIZER INC-2014311085

PATIENT
  Age: 55 Year
  Sex: Female

DRUGS (2)
  1. ROBITUSSIN PEAK COLD MAXIMUM STRENGTH COUGH PLUS CHEST CONGESTION DM [Suspect]
     Active Substance: DEXTROMETHORPHAN HYDROBROMIDE\GUAIFENESIN
     Indication: PULMONARY CONGESTION
  2. ROBITUSSIN PEAK COLD MAXIMUM STRENGTH COUGH PLUS CHEST CONGESTION DM [Suspect]
     Active Substance: DEXTROMETHORPHAN HYDROBROMIDE\GUAIFENESIN
     Indication: COUGH
     Dosage: UNK
     Dates: start: 201410, end: 2014

REACTIONS (21)
  - Nausea [Recovered/Resolved]
  - Electrocardiogram abnormal [Unknown]
  - Nasopharyngitis [Unknown]
  - Urinary sediment present [Unknown]
  - Pneumonia [Unknown]
  - Blood sodium decreased [Unknown]
  - Blood glucose increased [Unknown]
  - Bilirubin conjugated [Unknown]
  - Product taste abnormal [Recovered/Resolved]
  - Asthma [Unknown]
  - Blood calcium decreased [Unknown]
  - Cough [Unknown]
  - Blood bilirubin increased [Unknown]
  - Right ventricular hypertrophy [Unknown]
  - Protein urine present [Unknown]
  - Urine ketone body present [Unknown]
  - Blood beryllium increased [Unknown]
  - Protein total increased [Unknown]
  - Blood chloride decreased [Unknown]
  - Sinus tachycardia [Unknown]
  - Bundle branch block right [Unknown]
